FAERS Safety Report 6156113-X (Version None)
Quarter: 2009Q2

REPORT INFORMATION
  Report Type: 
  Country: None (occurrence: None)
  Receive Date: 20090415
  Receipt Date: 20090331
  Transmission Date: 20091009
  Serious: Yes (Hospitalization)
  Sender: FDA-Public Use
  Company Number: JP-GENENTECH-280099

PATIENT
  Sex: Male

DRUGS (9)
  1. TRASTUZUMAB [Suspect]
     Indication: GASTRIC CANCER
     Dosage: UNK
     Route: 042
     Dates: start: 20081203
  2. CAPECITABINE [Suspect]
     Indication: GASTRIC CANCER
     Dosage: UNK
     Route: 048
     Dates: start: 20081203, end: 20090107
  3. CISPLATIN [Suspect]
     Indication: GASTRIC CANCER
     Dosage: UNK
     Route: 042
     Dates: start: 20081203, end: 20090107
  4. RILMAZAFONE HYDROCHLORIDE [Concomitant]
     Indication: DRUG USE FOR UNKNOWN INDICATION
     Dosage: UNK
  5. MOSAPRIDE CITRATE [Concomitant]
     Indication: DRUG USE FOR UNKNOWN INDICATION
     Dosage: UNK
  6. LANSOPRAZOLE [Concomitant]
     Indication: DRUG USE FOR UNKNOWN INDICATION
     Dosage: UNK
  7. DOMPERIDONE [Concomitant]
     Indication: DRUG USE FOR UNKNOWN INDICATION
     Dosage: UNK
  8. SENNOSIDE A+B [Concomitant]
     Indication: DRUG USE FOR UNKNOWN INDICATION
     Dosage: UNK
  9. FLUIDS (UNK INGREDIENTS) [Suspect]

REACTIONS (3)
  - DEHYDRATION [None]
  - INFECTION [None]
  - PYREXIA [None]
